FAERS Safety Report 12568821 (Version 2)
Quarter: 2016Q3

REPORT INFORMATION
  Report Type: Other
  Country: AT (occurrence: AT)
  Receive Date: 20160719
  Receipt Date: 20160803
  Transmission Date: 20161109
  Serious: Yes (Hospitalization, Other)
  Sender: FDA-Public Use
  Company Number: AT-SHIRE-AT201608475

PATIENT
  Age: 52 Year
  Sex: Female
  Weight: 70 kg

DRUGS (1)
  1. REVESTIVE [Suspect]
     Active Substance: TEDUGLUTIDE
     Indication: SHORT-BOWEL SYNDROME
     Dosage: 0.32 ML, 1X/DAY:QD
     Route: 058
     Dates: start: 20160627

REACTIONS (8)
  - Localised oedema [Unknown]
  - Oedema peripheral [Unknown]
  - Constipation [Unknown]
  - Weight increased [Unknown]
  - Night sweats [Unknown]
  - Headache [Unknown]
  - Nausea [Unknown]
  - Chest discomfort [Unknown]

NARRATIVE: CASE EVENT DATE: 20160628
